FAERS Safety Report 4469141-7 (Version None)
Quarter: 2004Q4

REPORT INFORMATION
  Report Type: 
  Country: None (occurrence: None)
  Receive Date: 20041005
  Receipt Date: 20041005
  Transmission Date: 20050328
  Serious: No
  Sender: FDA-Public Use
  Company Number: None

PATIENT
  Sex: Male
  Weight: 89.8122 kg

DRUGS (9)
  1. VIREAD [Suspect]
     Indication: BLOOD CREATININE INCREASED
     Dosage: 300 MG PO QD
     Route: 048
     Dates: start: 20020828, end: 20040714
  2. 3TZ [Concomitant]
  3. NVD [Concomitant]
  4. ABC [Concomitant]
  5. TRICOR [Concomitant]
  6. PRAVACHOL [Concomitant]
  7. TENORMIN [Concomitant]
  8. DYAZIDE [Concomitant]
  9. REGLAN [Concomitant]

REACTIONS (1)
  - FANCONI SYNDROME ACQUIRED [None]
